FAERS Safety Report 5096297-8 (Version None)
Quarter: 2006Q3

REPORT INFORMATION
  Report Type: 
  Country: None (occurrence: None)
  Receive Date: 20060905
  Receipt Date: 20060825
  Transmission Date: 20061208
  Serious: Yes (Hospitalization)
  Sender: FDA-Public Use
  Company Number: GB-ROCHE-461700

PATIENT
  Age: 43 Year
  Sex: Female

DRUGS (1)
  1. LARIAM [Suspect]
     Indication: PROPHYLAXIS
     Route: 048

REACTIONS (7)
  - ABNORMAL BEHAVIOUR [None]
  - ANAEMIA [None]
  - ANXIETY [None]
  - CONFUSIONAL STATE [None]
  - INSOMNIA [None]
  - LIVER DISORDER [None]
  - PSYCHOTIC DISORDER [None]
